FAERS Safety Report 9434583 (Version 2)
Quarter: 2014Q1

REPORT INFORMATION
  Report Type: Spontaneous
  Country: US (occurrence: US)
  Receive Date: 20130801
  Receipt Date: 20140210
  Transmission Date: 20141002
  Serious: No
  Sender: FDA-Public Use
  Company Number: US-PFIZER INC-2013221788

PATIENT
  Age: 46 Year
  Sex: Female

DRUGS (8)
  1. XELJANZ [Suspect]
     Indication: RHEUMATOID ARTHRITIS
     Dosage: 5 MG, 2X/DAY (ONE TABLET)
     Route: 048
     Dates: start: 20130715
  2. PRISTIQ [Concomitant]
     Dosage: 50 MG, UNK
  3. XANAX [Concomitant]
     Dosage: 2 MG, UNK
  4. AMBIEN [Concomitant]
     Dosage: 10 MG, UNK
  5. PREDNISONE [Concomitant]
     Dosage: 5MG/5ML, UNK (FORMULATION: SOL)
  6. LYRICA [Concomitant]
     Dosage: 50 MG, UNK
  7. TEGRETAL-XR [Concomitant]
     Dosage: 100 MG, UNK
  8. METHOTREXATE [Concomitant]
     Dosage: 25 MG/ML, UNK

REACTIONS (2)
  - Abdominal discomfort [Unknown]
  - Arthritis [Unknown]
